FAERS Safety Report 4954377-9 (Version None)
Quarter: 2006Q1

REPORT INFORMATION
  Report Type: 
  Country: None (occurrence: None)
  Receive Date: 20060322
  Receipt Date: 20060309
  Transmission Date: 20060701
  Serious: Yes (Hospitalization)
  Sender: FDA-Public Use
  Company Number: HQWYE144107FEB05

PATIENT
  Age: 45 Year
  Sex: Male

DRUGS (5)
  1. RAPAMUNE [Suspect]
     Indication: PROPHYLAXIS AGAINST TRANSPLANT REJECTION
     Dosage: 5 MG 1X PER 1 DAY ORAL
     Route: 048
     Dates: start: 20050117, end: 20050201
  2. RAPAMUNE [Suspect]
     Indication: PROPHYLAXIS AGAINST TRANSPLANT REJECTION
     Dosage: ORAL
     Route: 048
     Dates: start: 20050201
  3. CORTICOSTEROIDS (CORTICOSTEROIDS, ) [Suspect]
     Indication: PROPHYLAXIS AGAINST TRANSPLANT REJECTION
     Dosage: ORAL
     Route: 048
  4. MYCOPHENOLATE MOFETIL [Suspect]
     Indication: PROPHYLAXIS AGAINST TRANSPLANT REJECTION
     Dosage: ORAL
     Route: 048
  5. ZENAPAX [Suspect]
     Dosage: INTRAVENOUS
     Route: 042

REACTIONS (8)
  - ABDOMINAL PAIN [None]
  - ABDOMINAL PAIN LOWER [None]
  - ANORECTAL DISORDER [None]
  - BLADDER DISORDER [None]
  - BLOOD CREATININE INCREASED [None]
  - CARDIAC OUTPUT DECREASED [None]
  - FLUID OVERLOAD [None]
  - MUSCLE HAEMORRHAGE [None]
